FAERS Safety Report 6083241-X (Version None)
Quarter: 2009Q1

REPORT INFORMATION
  Report Type: 
  Country: None (occurrence: None)
  Receive Date: 20090213
  Receipt Date: 20090213
  Transmission Date: 20090719
  Serious: Yes (Hospitalization)
  Sender: FDA-Public Use
  Company Number: None

PATIENT
  Age: 66 Year
  Sex: Female
  Weight: 53.5244 kg

DRUGS (1)
  1. AMBIEN [Suspect]
     Indication: FACE LIFT
     Dosage: 2 - 5 MG 7 AM 1 - 5 MG 1:00 PM BY MOUTH ONLY DATE
     Route: 048
     Dates: start: 20080521

REACTIONS (8)
  - AGITATION [None]
  - BLOOD PRESSURE INCREASED [None]
  - COMA [None]
  - CONFUSIONAL STATE [None]
  - HAEMATOMA [None]
  - HAEMORRHAGE [None]
  - HALLUCINATION [None]
  - INFECTION [None]
